FAERS Safety Report 13079175 (Version 1)
Quarter: 2017Q1

REPORT INFORMATION
  Report Type: Spontaneous
  Country: CA (occurrence: CA)
  Receive Date: 20170103
  Receipt Date: 20170103
  Transmission Date: 20170428
  Serious: Yes (Hospitalization)
  Sender: FDA-Public Use
  Company Number: CA-TEVA-724875ACC

PATIENT
  Age: 23 Year
  Sex: Male
  Weight: 49.94 kg

DRUGS (5)
  1. ZANTAC [Concomitant]
     Active Substance: RANITIDINE HYDROCHLORIDE
  2. BACLOFEN. [Suspect]
     Active Substance: BACLOFEN
     Indication: JOINT CONTRACTURE
     Dosage: 10 MILLIGRAM DAILY;
     Route: 048
  3. FRISIUM TABLET 10MG [Concomitant]
  4. PRIMIDONE. [Concomitant]
     Active Substance: PRIMIDONE
  5. KEPPRA [Concomitant]
     Active Substance: LEVETIRACETAM

REACTIONS (8)
  - Pneumonia [Recovered/Resolved]
  - Dysphagia [Recovered/Resolved]
  - Muscle twitching [Recovered/Resolved]
  - Pharyngeal oedema [Recovered/Resolved]
  - Withdrawal syndrome [Recovered/Resolved]
  - Aspiration [Recovered/Resolved]
  - Swollen tongue [Recovered/Resolved]
  - Tremor [Recovered/Resolved]
